FAERS Safety Report 11151137 (Version 1)
Quarter: 2015Q2

REPORT INFORMATION
  Report Type: Spontaneous
  Country: US (occurrence: None)
  Receive Date: 20150528
  Receipt Date: 20150528
  Transmission Date: 20150821
  Serious: Yes (Hospitalization, Other)
  Sender: FDA-Public Use
  Company Number: 8026252

PATIENT
  Age: 20 Year
  Sex: Female

DRUGS (1)
  1. LEVOTHYROXINE [Suspect]
     Active Substance: LEVOTHYROXINE
     Indication: AUTOIMMUNE THYROIDITIS

REACTIONS (12)
  - Skin warm [None]
  - Blood pressure decreased [None]
  - Primary adrenal insufficiency [None]
  - Oxygen saturation decreased [None]
  - Adrenalitis [None]
  - Heart rate increased [None]
  - Nausea [None]
  - Dry skin [None]
  - Abdominal pain upper [None]
  - Respiratory rate increased [None]
  - Pericardial effusion [None]
  - Cardiogenic shock [None]
